FAERS Safety Report 9729624 (Version 1)
Quarter: 2013Q4

REPORT INFORMATION
  Report Type: Spontaneous
  Country: US (occurrence: US)
  Receive Date: 20131204
  Receipt Date: 20131204
  Transmission Date: 20140711
  Serious: No
  Sender: FDA-Public Use
  Company Number: US-ENDO PHARMACEUTICALS INC.-ZOLP20120011

PATIENT
  Sex: Female
  Weight: 59.02 kg

DRUGS (1)
  1. ZOLPIDEM TARTRATE TABLETS 10MG [Suspect]
     Indication: INSOMNIA
     Route: 048
     Dates: start: 2007

REACTIONS (2)
  - Panic attack [Recovered/Resolved]
  - Asthenia [Not Recovered/Not Resolved]
